FAERS Safety Report 13385351 (Version 1)
Quarter: 2017Q1

REPORT INFORMATION
  Report Type: Spontaneous
  Country: HK (occurrence: HK)
  Receive Date: 20170329
  Receipt Date: 20170329
  Transmission Date: 20170429
  Serious: Yes (Other)
  Sender: FDA-Public Use
  Company Number: HK-ROCHE-1906398

PATIENT

DRUGS (1)
  1. GAZYVA [Suspect]
     Active Substance: OBINUTUZUMAB
     Indication: APLASTIC ANAEMIA
     Route: 065

REACTIONS (3)
  - White blood cell count decreased [Unknown]
  - Off label use [Unknown]
  - Neutropenia [Unknown]
